FAERS Safety Report 9981968 (Version 1)
Quarter: 2014Q1

REPORT INFORMATION
  Report Type: Spontaneous
  Country: US (occurrence: None)
  Receive Date: 20140127
  Receipt Date: 20140127
  Transmission Date: 20141002
  Serious: No
  Sender: FDA-Public Use
  Company Number: 1204498

PATIENT
  Age: 57 Year
  Sex: Male
  Weight: 149.23 kg

DRUGS (10)
  1. RITUXAN [Suspect]
     Indication: IMMUNE THROMBOCYTOPENIC PURPURA
     Dosage: 900MG, WEEKLY X 4 INTRAVENOUS
     Route: 042
     Dates: start: 20130206, end: 20130221
  2. TYLENOL (PARACETAMOL) [Concomitant]
  3. LISINOPRIL (LISINOPRIL) [Concomitant]
  4. CLONIDINE (CLONIDINE) [Concomitant]
  5. BENADRYL (DIPHENHYDRAMINE HYDROCHLORIDE) [Concomitant]
  6. AMLODIPINE (AMLODIPINE) [Concomitant]
  7. VICODIN (HYDROCODONE TARTRATE PARACETAMOL) (TABLET) [Concomitant]
  8. METRONIDAZOLE (METRONIDAZOLE) [Concomitant]
  9. SILDENAFIL (SILDENAFIL CITRATE) [Concomitant]
  10. METFORMIN (METFORMIN HYDROCHLORIDE) (TABLET) [Concomitant]

REACTIONS (1)
  - Chills [None]
